FAERS Safety Report 4827473-4 (Version None)
Quarter: 2005Q4

REPORT INFORMATION
  Report Type: 
  Country: None (occurrence: None)
  Receive Date: 20051114
  Receipt Date: 20050224
  Transmission Date: 20060501
  Serious: Yes (Hospitalization, Disabling)
  Sender: FDA-Public Use
  Company Number: US-ROCHE-396806

PATIENT
  Age: 20 Year
  Sex: Male
  Weight: 59 kg

DRUGS (3)
  1. ACCUTANE [Suspect]
     Route: 048
     Dates: start: 19960822, end: 19960905
  2. ACCUTANE [Suspect]
     Route: 048
     Dates: start: 19960905, end: 19961010
  3. ACCUTANE [Suspect]
     Route: 048
     Dates: start: 19961025, end: 19970203

REACTIONS (18)
  - CROHN'S DISEASE [None]
  - DEPRESSION [None]
  - EPISTAXIS [None]
  - FATIGUE [None]
  - GASTROINTESTINAL DISORDER [None]
  - HEART RATE IRREGULAR [None]
  - ILL-DEFINED DISORDER [None]
  - INFLAMMATORY BOWEL DISEASE [None]
  - INSOMNIA [None]
  - INTESTINAL HAEMORRHAGE [None]
  - LIP DRY [None]
  - MULTI-ORGAN DISORDER [None]
  - MYALGIA [None]
  - NAUSEA [None]
  - RECTAL HAEMORRHAGE [None]
  - SINUS TACHYCARDIA [None]
  - SUICIDAL IDEATION [None]
  - VISUAL DISTURBANCE [None]
